FAERS Safety Report 5396776-X (Version None)
Quarter: 2007Q3

REPORT INFORMATION
  Report Type: 
  Country: None (occurrence: None)
  Receive Date: 20070725
  Receipt Date: 20070713
  Transmission Date: 20080115
  Serious: Yes (Hospitalization, Other)
  Sender: FDA-Public Use
  Company Number: DE-ROCHE-494544

PATIENT
  Age: 53 Year
  Sex: Male
  Weight: 75 kg

DRUGS (4)
  1. PEGASYS [Suspect]
     Indication: HEPATITIS C
     Route: 058
     Dates: start: 20060101, end: 20070101
  2. COPEGUS [Suspect]
     Indication: HEPATITIS C
     Route: 048
     Dates: start: 20060101, end: 20070101
  3. DIOVAN HCT [Concomitant]
     Indication: HYPERTENSION
  4. ZOPICLON [Concomitant]
     Indication: DEPRESSION
     Route: 048
     Dates: start: 20060501, end: 20070101

REACTIONS (3)
  - DEPRESSION [None]
  - HAEMOCHROMATOSIS [None]
  - TYPE 2 DIABETES MELLITUS [None]
